FAERS Safety Report 25089612 (Version 1)
Quarter: 2025Q1

REPORT INFORMATION
  Report Type: Spontaneous
  Country: US (occurrence: US)
  Receive Date: 20250318
  Receipt Date: 20250318
  Transmission Date: 20250409
  Serious: No
  Sender: BRISTOL-MYERS SQUIBB COMPANY
  Company Number: US-BRISTOL-MYERS SQUIBB COMPANY-2025-039347

PATIENT
  Age: 60 Year
  Sex: Female

DRUGS (1)
  1. INREBIC [Suspect]
     Active Substance: FEDRATINIB HYDROCHLORIDE
     Indication: Product used for unknown indication

REACTIONS (7)
  - Pain [Unknown]
  - Dry mouth [Unknown]
  - Oral pain [Unknown]
  - Dry skin [Unknown]
  - Pruritus [Unknown]
  - Headache [Unknown]
  - Product dose omission issue [Unknown]
